FAERS Safety Report 9094381 (Version 1)
Quarter: 2013Q1

REPORT INFORMATION
  Report Type: Spontaneous
  Country: GB (occurrence: GB)
  Receive Date: 20130201
  Receipt Date: 20130201
  Transmission Date: 20140127
  Serious: Yes (Other)
  Sender: FDA-Public Use
  Company Number: GB-ELI_LILLY_AND_COMPANY-GB201301007181

PATIENT
  Age: 54 Year
  Sex: Male
  Weight: 82.55 kg

DRUGS (3)
  1. HUMALOG LISPRO [Suspect]
     Indication: TYPE 1 DIABETES MELLITUS
     Dosage: UNK, PRN
     Route: 051
     Dates: start: 20121018, end: 20130108
  2. LANTUS [Concomitant]
  3. ENALAPRIL [Concomitant]

REACTIONS (6)
  - Suicidal ideation [Recovered/Resolved]
  - Retinopathy haemorrhagic [Not Recovered/Not Resolved]
  - Mood swings [Unknown]
  - Major depression [Recovered/Resolved]
  - Headache [Unknown]
  - Diabetic retinopathy [Not Recovered/Not Resolved]
